FAERS Safety Report 8885274 (Version 1)
Quarter: 2012Q4

REPORT INFORMATION
  Report Type: 
  Country: GB (occurrence: GB)
  Receive Date: 20121102
  Receipt Date: 20121102
  Transmission Date: 20130627
  Serious: Yes (Hospitalization, Other)
  Sender: FDA-Public Use
  Company Number: GB-GENZYME-MOZO-1000690

PATIENT
  Age: 72 Year
  Sex: Male
  Weight: 75 kg

DRUGS (15)
  1. MOZOBIL [Suspect]
     Indication: MYELODYSPLASTIC SYNDROME
     Dosage: 240 mcg/kg, qd
     Route: 058
     Dates: start: 20120303, end: 20120307
  2. MOZOBIL [Suspect]
     Dosage: UNK
     Route: 065
  3. EVOLTRA [Suspect]
     Indication: MYELODYSPLASTIC SYNDROME
     Dosage: 40 mg, qd
     Route: 065
     Dates: start: 20120303, end: 20120307
  4. EVOLTRA [Suspect]
     Dosage: UNK
     Route: 065
     Dates: start: 20120424
  5. DAUNORUBICIN [Suspect]
     Indication: MYELODYSPLASTIC SYNDROME
     Dosage: 75 mg, qod
     Route: 065
     Dates: start: 20120303, end: 20120307
  6. DAUNORUBICIN [Suspect]
     Dosage: UNK
     Route: 065
     Dates: start: 20120424
  7. ITRACONAZOLE [Suspect]
     Indication: PRODUCT USED FOR UNKNOWN INDICATION
     Dosage: 200 mg, bid
     Route: 065
     Dates: start: 20120424, end: 20120511
  8. ITRACONAZOLE [Suspect]
     Dosage: UNK
     Route: 065
     Dates: start: 20120424
  9. DEXAMETHASONE [Suspect]
     Indication: PRODUCT USED FOR UNKNOWN INDICATION
     Dosage: UNK
     Route: 065
     Dates: start: 20120424
  10. ACICLOVIR [Concomitant]
     Indication: PROPHYLAXIS
     Dosage: 400 mg, bid
     Route: 065
     Dates: start: 20120302
  11. OMEPRAZOLE [Concomitant]
     Indication: PROPHYLAXIS
     Dosage: 200 mg, qd
     Route: 065
     Dates: start: 20120303
  12. NYSTATIN [Concomitant]
     Indication: PROPHYLAXIS
     Dosage: 1 ml, qid
     Route: 065
     Dates: start: 20120302
  13. TAMSULOSIN [Concomitant]
     Indication: BENIGN PROSTATIC HYPERPLASIA
     Dosage: 400 mcg, qd
     Route: 065
  14. CIPROFLOXACIN [Concomitant]
     Indication: PROPHYLAXIS
     Dosage: 500 mg, bid
     Route: 065
     Dates: start: 20120302
  15. LINEZOLID [Concomitant]
     Indication: INFECTION
     Dosage: 600 mg, bid
     Route: 065
     Dates: start: 20120402, end: 20120513

REACTIONS (3)
  - Tremor [Recovered/Resolved]
  - Thrombocytopenia [Recovered/Resolved]
  - Anaemia [Recovered/Resolved]
